FAERS Safety Report 5059934-X (Version None)
Quarter: 2006Q3

REPORT INFORMATION
  Report Type: 
  Country: None (occurrence: None)
  Receive Date: 20060718
  Receipt Date: 20060704
  Transmission Date: 20061208
  Serious: Yes (Hospitalization)
  Sender: FDA-Public Use
  Company Number: 2006P1000366

PATIENT
  Age: 44 Year
  Sex: Male

DRUGS (2)
  1. BUSULFAN (BUSULFAN) [Suspect]
     Indication: STEM CELL TRANSPLANT
     Dosage: 208 MG; QD; IV
     Route: 042
     Dates: start: 20060322, end: 20060326
  2. ALKERAN [Concomitant]

REACTIONS (8)
  - APLASIA [None]
  - BLOOD ALKALINE PHOSPHATASE INCREASED [None]
  - GAMMA-GLUTAMYLTRANSFERASE INCREASED [None]
  - INCORRECT DOSE ADMINISTERED [None]
  - MUCOSAL INFLAMMATION [None]
  - OVERDOSE [None]
  - STOMATITIS [None]
  - TRANSAMINASES INCREASED [None]
